FAERS Safety Report 9447204 (Version 3)
Quarter: 2013Q4

REPORT INFORMATION
  Report Type: Report from Study
  Country: JP (occurrence: JP)
  Receive Date: 20130807
  Receipt Date: 20131011
  Transmission Date: 20140711
  Serious: Yes (Death, Life-Threatening, Hospitalization)
  Sender: FDA-Public Use
  Company Number: JP-009507513-1308JPN002131

PATIENT
  Age: 50 Year
  Sex: Male

DRUGS (4)
  1. ZOLINZA CAPSULES 100MG [Suspect]
     Indication: MYCOSIS FUNGOIDES
     Dosage: 400 MG, QD
     Route: 048
     Dates: start: 20130322, end: 20130728
  2. DERMOVATE [Concomitant]
     Indication: INFECTION
     Dosage: DAILY DOSE UNKNOWN; FORMULATION OIT
     Route: 061
     Dates: end: 20130725
  3. NERISONA [Concomitant]
     Indication: INFECTION
     Dosage: DAILY DOSAGE UNKNOWN; FORMULATION OIT
     Route: 061
     Dates: end: 20130725
  4. LOCOID [Suspect]
     Indication: INFECTION
     Dosage: DAILY DOSAGE UNKNOWN;FOMULATION OIT
     Route: 061
     Dates: end: 20130725

REACTIONS (13)
  - Pancytopenia [Fatal]
  - Disseminated intravascular coagulation [Fatal]
  - Sepsis [Fatal]
  - Platelet count decreased [Fatal]
  - White blood cell count decreased [Fatal]
  - Anaemia [Fatal]
  - Pneumonia [Fatal]
  - Dermatitis exfoliative [Fatal]
  - Skin exfoliation [Fatal]
  - Bacterial infection [Fatal]
  - Oedema peripheral [Recovering/Resolving]
  - Platelet count decreased [Recovering/Resolving]
  - Hepatic function abnormal [Not Recovered/Not Resolved]
